FAERS Safety Report 10870886 (Version 1)
Quarter: 2015Q1

REPORT INFORMATION
  Report Type: Spontaneous
  Country: AT (occurrence: AT)
  Receive Date: 20150226
  Receipt Date: 20150226
  Transmission Date: 20150721
  Serious: Yes (Hospitalization)
  Sender: FDA-Public Use
  Company Number: AT-SA-2015SA021106

PATIENT
  Age: 65 Year
  Sex: Female
  Weight: 102 kg

DRUGS (8)
  1. BERODUAL [Concomitant]
     Active Substance: FENOTEROL HYDROBROMIDE\IPRATROPIUM BROMIDE
     Dosage: DOSAGE TEXT: 2 PUFF AT REQUEST.
  2. LOVENOX [Suspect]
     Active Substance: ENOXAPARIN SODIUM
     Indication: THROMBOPHLEBITIS
     Dosage: DOSAGE TEXT: 2X DAILY.
     Route: 042
     Dates: start: 20141202, end: 20141207
  3. CANDESARTAN CILEXETIL AND HYDROCHLOROTHIAZIDE [Concomitant]
     Active Substance: CANDESARTAN CILEXETIL\HYDROCHLOROTHIAZIDE
     Dosage: 1-0-0, BLOPRESS PLUS 32 MG/25 MG- TABLETTEN.
  4. ZYRTEC [Concomitant]
     Active Substance: CETIRIZINE HYDROCHLORIDE
     Dosage: DOSAGE TEXT: 1-1-1/ON REQUEST UP TO 3 TIMES DAILY.
  5. XARELTO [Concomitant]
     Active Substance: RIVAROXABAN
     Dosage: DOSAGE TEXT: 1-0-0/FOR 3 MONTHS.
     Dates: start: 20140102
  6. LASIX [Concomitant]
     Active Substance: FUROSEMIDE
     Dosage: 1-0-0.
  7. XARELTO [Concomitant]
     Active Substance: RIVAROXABAN
     Dosage: DOSAGE TEXT: 1-0-1/FOR 3 WEEKS.?NUMBER OF SEPARATE DOSAGES:2.
     Dates: end: 20140101
  8. PANTOLOC [Concomitant]
     Active Substance: PANTOPRAZOLE SODIUM
     Dosage: 1-0-0.

REACTIONS (7)
  - Injection site reaction [Recovered/Resolved]
  - Drug hypersensitivity [Recovered/Resolved]
  - Injection site erythema [Recovered/Resolved]
  - Gastrointestinal pain [Recovered/Resolved]
  - Injection site exfoliation [Recovered/Resolved]
  - Rash [Recovered/Resolved]
  - Injection site swelling [Recovered/Resolved]

NARRATIVE: CASE EVENT DATE: 20141204
